FAERS Safety Report 4823502-2 (Version None)
Quarter: 2005Q4

REPORT INFORMATION
  Report Type: 
  Country: None (occurrence: None)
  Receive Date: 20051107
  Receipt Date: 20051025
  Transmission Date: 20060501
  Serious: Yes (Hospitalization)
  Sender: FDA-Public Use
  Company Number: GBWYE086525OCT05

PATIENT
  Age: 7 Year
  Sex: Female

DRUGS (3)
  1. IBUPROFEN [Suspect]
     Indication: PYREXIA
     Dosage: SINGLE DOSE 100 MG
  2. FLUCLOXACILLIN (FLUCLOXACILLIN, , 0) [Suspect]
  3. ANTIBIOTICS (ANTIBIOTICS) [Concomitant]

REACTIONS (8)
  - DEHYDRATION [None]
  - DISEASE PROGRESSION [None]
  - HAEMODIALYSIS [None]
  - MALAISE [None]
  - RENAL FAILURE CHRONIC [None]
  - RENAL ISCHAEMIA [None]
  - RENAL TUBULAR NECROSIS [None]
  - VOMITING [None]
